FAERS Safety Report 4824519-4 (Version None)
Quarter: 2005Q4

REPORT INFORMATION
  Report Type: 
  Country: None (occurrence: None)
  Receive Date: 20051108
  Receipt Date: 20051025
  Transmission Date: 20060501
  Serious: Yes (Other)
  Sender: FDA-Public Use
  Company Number: FR_051007386

PATIENT
  Age: 50 Year
  Sex: Female

DRUGS (2)
  1. GEMZAR [Suspect]
     Indication: OVARIAN CANCER
     Dates: start: 20050101, end: 20050101
  2. ACETAMINOPHEN [Concomitant]

REACTIONS (3)
  - HEPATOCELLULAR DAMAGE [None]
  - OVERDOSE [None]
  - PYREXIA [None]
